FAERS Safety Report 6810581-6 (Version None)
Quarter: 2010Q2

REPORT INFORMATION
  Report Type: 
  Country: None (occurrence: None)
  Receive Date: 20100625
  Receipt Date: 20100609
  Transmission Date: 20101027
  Serious: Yes (Hospitalization)
  Sender: FDA-Public Use
  Company Number: DSA_43338_2010

PATIENT
  Age: 76 Year
  Sex: Male

DRUGS (4)
  1. DILTIAZEM [Suspect]
     Indication: HYPERTENSION
     Dosage: 120 MG QD ORAL
     Route: 048
     Dates: start: 20090201, end: 20091224
  2. ENALAPRIL MALEATE [Concomitant]
  3. ALLOPURINOL [Concomitant]
  4. SEGURIL [Concomitant]

REACTIONS (2)
  - ACUTE PULMONARY OEDEMA [None]
  - ATRIOVENTRICULAR BLOCK COMPLETE [None]
